FAERS Safety Report 9725337 (Version 1)
Quarter: 2013Q4

REPORT INFORMATION
  Report Type: Spontaneous
  Country: JP (occurrence: JP)
  Receive Date: 20131203
  Receipt Date: 20131203
  Transmission Date: 20140711
  Serious: Yes (Hospitalization)
  Sender: FDA-Public Use
  Company Number: JP-MYLANLABS-2013S1026482

PATIENT
  Age: 6 Decade
  Sex: Female
  Weight: 65 kg

DRUGS (4)
  1. LOSARTAN [Suspect]
     Indication: HYPERTENSION
     Dosage: 50 MG/DAY
     Dates: start: 200403
  2. TRICHLORMETHIAZIDE [Concomitant]
     Indication: HYPERTENSION
     Dosage: 2 MG/DAY
     Dates: start: 200403
  3. FLUVOXAMINE [Concomitant]
     Indication: DEPRESSION
     Dosage: 50 MG/DAY
     Route: 065
     Dates: start: 200905
  4. ROSUVASTATIN [Concomitant]
     Indication: HYPERCHOLESTEROLAEMIA
     Dosage: 2.5 MG/DAY
     Dates: start: 201111

REACTIONS (1)
  - Drug-induced liver injury [Recovered/Resolved]
